FAERS Safety Report 9046314 (Version 3)
Quarter: 2013Q4

REPORT INFORMATION
  Report Type: Spontaneous
  Country: US (occurrence: US)
  Receive Date: 20130201
  Receipt Date: 20131202
  Transmission Date: 20140711
  Serious: Yes (Other)
  Sender: FDA-Public Use
  Company Number: US-JNJFOC-20130111483

PATIENT
  Age: 56 Year
  Sex: Male

DRUGS (3)
  1. DURAGESIC [Suspect]
     Indication: SPINAL FRACTURE
     Route: 062
     Dates: start: 1999
  2. DURAGESIC [Suspect]
     Indication: PAIN
     Dosage: NDC # 50458-093-05
     Route: 062
  3. DURAGESIC [Suspect]
     Indication: SPINAL FRACTURE
     Dosage: NDC # 50458-093-05
     Route: 062

REACTIONS (15)
  - Non-Hodgkin^s lymphoma [Not Recovered/Not Resolved]
  - Epilepsy [Unknown]
  - Precancerous cells present [Recovered/Resolved]
  - Breast cancer [Recovered/Resolved]
  - Colon cancer [Unknown]
  - Drug dose omission [Unknown]
  - Pain [Unknown]
  - Inappropriate schedule of drug administration [Not Recovered/Not Resolved]
  - Product adhesion issue [Unknown]
  - Product quality issue [Unknown]
  - Back pain [Recovered/Resolved]
  - Malaise [Recovered/Resolved]
  - Incorrect drug administration duration [Recovered/Resolved]
  - Wrong technique in drug usage process [Not Recovered/Not Resolved]
  - Product quality issue [Unknown]
